FAERS Safety Report 10589102 (Version 1)
Quarter: 2014Q4

REPORT INFORMATION
  Report Type: Other
  Country: DE (occurrence: DE)
  Receive Date: 20141118
  Receipt Date: 20141118
  Transmission Date: 20150529
  Serious: Yes (Congenital Anomaly, Other)
  Sender: FDA-Public Use
  Company Number: DE-GLENMARK GENERICS INC.-2014GMK011875

PATIENT
  Age: 0 Day
  Sex: Male
  Weight: 2.95 kg

DRUGS (8)
  1. UTROGEST [Concomitant]
     Active Substance: PROGESTERONE
     Indication: PROPHYLAXIS OF ABORTION
     Dosage: 100 MG, TID
     Route: 064
     Dates: start: 20130814, end: 20130828
  2. GONAL-F [Concomitant]
     Active Substance: FOLLITROPIN
     Indication: INFERTILITY FEMALE
     Dosage: UNK, 112.5 INCREMENTS DAILY
     Route: 064
     Dates: start: 20130731, end: 20130811
  3. VIGANTOLETTEN [Concomitant]
     Active Substance: CHOLECALCIFEROL
     Indication: VITAMIN D DEFICIENCY
     Dosage: 1000 IU, OD
     Route: 064
     Dates: start: 20131217, end: 20140511
  4. PROSTAGLANDINS [Concomitant]
     Indication: LABOUR INDUCTION
     Dosage: UNK
     Route: 064
     Dates: start: 20130509, end: 20140509
  5. BREVACTID [Concomitant]
     Active Substance: CHORIOGONADOTROPIN ALFA
     Indication: INFERTILITY FEMALE
     Dosage: 5000 IU, EVERY YEAR
     Route: 064
     Dates: start: 20130812, end: 20130812
  6. METFORMIN [Suspect]
     Active Substance: METFORMIN HYDROCHLORIDE
     Indication: INSULIN RESISTANCE
     Dosage: 1000 MG, BID
     Route: 064
     Dates: start: 20130730, end: 20140511
  7. AFLURIA [Concomitant]
     Active Substance: INFLUENZA VIRUS VACCINE TRIVALENT TYPE A+B AFLURIA
     Indication: IMMUNISATION
     Dosage: UNK
     Route: 064
     Dates: start: 20131111, end: 20131111
  8. TAXOFIT FOLSAURE + METAFOLIN 800 [Concomitant]
     Indication: PROPHYLAXIS OF NEURAL TUBE DEFECT
     Dosage: 0.8 MG, OD
     Route: 064
     Dates: start: 20130730, end: 20131029

REACTIONS (2)
  - Cryptorchism [Not Recovered/Not Resolved]
  - Small for dates baby [Unknown]

NARRATIVE: CASE EVENT DATE: 20140511
